FAERS Safety Report 10030251 (Version 1)
Quarter: 2014Q1

REPORT INFORMATION
  Report Type: Spontaneous
  Country: US (occurrence: US)
  Receive Date: 20140323
  Receipt Date: 20140323
  Transmission Date: 20141002
  Serious: No
  Sender: FDA-Public Use
  Company Number: US-ALLERGAN-1308002US

PATIENT
  Age: 39 Year
  Sex: Female

DRUGS (2)
  1. LATISSE 0.03% [Suspect]
     Indication: GROWTH OF EYELASHES
     Dosage: UNK
  2. NEXIUM                             /01479302/ [Concomitant]
     Indication: PRODUCT USED FOR UNKNOWN INDICATION

REACTIONS (2)
  - Erythema [Not Recovered/Not Resolved]
  - Madarosis [Not Recovered/Not Resolved]
